FAERS Safety Report 9191020 (Version 1)
Quarter: 2013Q1

REPORT INFORMATION
  Report Type: Spontaneous
  Country: US (occurrence: US)
  Receive Date: 20130326
  Receipt Date: 20130326
  Transmission Date: 20140127
  Serious: Yes (Other)
  Sender: FDA-Public Use
  Company Number: US-ALLERGAN-1304084US

PATIENT
  Sex: Female

DRUGS (2)
  1. RESTASIS? [Suspect]
     Indication: DRY EYE
     Dosage: 1 GTT, BID
     Route: 047
     Dates: start: 201303
  2. BENICAR [Concomitant]
     Indication: HYPERTENSION
     Dosage: UNK

REACTIONS (11)
  - Visual acuity reduced [Unknown]
  - Arrhythmia [Unknown]
  - Vision blurred [Not Recovered/Not Resolved]
  - Diplopia [Unknown]
  - Blood pressure increased [Unknown]
  - Throat irritation [Unknown]
  - Epistaxis [Unknown]
  - Oropharyngeal pain [Not Recovered/Not Resolved]
  - Gastrointestinal disorder [Unknown]
  - Feeling abnormal [Unknown]
  - Sleep disorder [Unknown]
